FAERS Safety Report 24836461 (Version 2)
Quarter: 2025Q1

REPORT INFORMATION
  Report Type: Spontaneous
  Country: KR (occurrence: KR)
  Receive Date: 20250113
  Receipt Date: 20250121
  Transmission Date: 20250409
  Serious: No
  Sender: REGENERON
  Company Number: KR-BAYER-2025A003850

PATIENT
  Age: 76 Year
  Sex: Female

DRUGS (2)
  1. EYLEA HD [Suspect]
     Active Substance: AFLIBERCEPT
     Indication: Product used for unknown indication
     Dates: start: 20241202, end: 20241202
  2. EYLEA HD [Suspect]
     Active Substance: AFLIBERCEPT
     Dates: start: 20250107, end: 20250107

REACTIONS (1)
  - Eye inflammation [Unknown]
